FAERS Safety Report 20451657 (Version 1)
Quarter: 2022Q1

REPORT INFORMATION
  Report Type: Spontaneous
  Country: US (occurrence: US)
  Receive Date: 20220209
  Receipt Date: 20220209
  Transmission Date: 20220424
  Serious: No
  Sender: FDA-Public Use
  Company Number: US-009507513-2112USA004151

PATIENT
  Sex: Female
  Weight: 66.667 kg

DRUGS (2)
  1. KEYTRUDA [Suspect]
     Active Substance: PEMBROLIZUMAB
     Indication: Renal cancer
     Dosage: 400 MILLIGRAM, EVERY 6 WEEKS
     Dates: start: 20190829
  2. AXITINIB [Concomitant]
     Active Substance: AXITINIB
     Dosage: UNK

REACTIONS (5)
  - Product closure issue [Unknown]
  - Product dose omission issue [Unknown]
  - Product leakage [Unknown]
  - Product preparation issue [Unknown]
  - No adverse event [Unknown]
